FAERS Safety Report 7282467-7 (Version None)
Quarter: 2011Q1

REPORT INFORMATION
  Report Type: 
  Country: None (occurrence: None)
  Receive Date: 20110209
  Receipt Date: 20110131
  Transmission Date: 20110831
  Serious: Yes (Other)
  Sender: FDA-Public Use
  Company Number: US-MPIJNJ-2011-00403

PATIENT
  Sex: Female

DRUGS (10)
  1. PREDNISONE [Concomitant]
     Indication: MULTIPLE MYELOMA
     Dosage: 20 MG, QD
  2. ZOLOFT                             /01011402/ [Concomitant]
     Indication: DEPRESSION
     Dosage: 50 MG, QD
  3. REVLIMID [Suspect]
     Dosage: 15 MG, UNK
     Route: 048
     Dates: start: 20101108
  4. REVLIMID [Suspect]
     Dosage: 15 MG, UNK
     Route: 048
     Dates: start: 20080401, end: 20080601
  5. VELCADE [Suspect]
     Indication: MULTIPLE MYELOMA
     Dosage: 1 MG/M2, UNK
     Dates: start: 20100921
  6. ASPIRIN [Concomitant]
     Indication: PROPHYLAXIS
     Dosage: 81 MG, QD
  7. REVLIMID [Suspect]
     Dosage: 25 MG, QD
     Route: 048
     Dates: start: 20061003, end: 20070401
  8. NEURONTIN [Concomitant]
     Indication: NEUROPATHY PERIPHERAL
     Dosage: 300 MG, QD
  9. REVLIMID [Suspect]
     Dosage: UNK MG, QD
     Route: 048
     Dates: start: 20070901, end: 20080101
  10. REVLIMID [Suspect]
     Indication: MULTIPLE MYELOMA
     Dosage: 25 MG, QD
     Route: 048
     Dates: start: 20100929, end: 20101020

REACTIONS (6)
  - DIARRHOEA [None]
  - FATIGUE [None]
  - JOINT SWELLING [None]
  - RASH [None]
  - PRURITUS [None]
  - ANAEMIA [None]
